FAERS Safety Report 5512578-5 (Version None)
Quarter: 2007Q4

REPORT INFORMATION
  Report Type: 
  Country: None (occurrence: None)
  Receive Date: 20071112
  Receipt Date: 20071101
  Transmission Date: 20080405
  Serious: Yes (Hospitalization, Other)
  Sender: FDA-Public Use
  Company Number: GB-JNJFOC-20071100725

PATIENT
  Sex: Male
  Weight: 93.5 kg

DRUGS (3)
  1. INFLIXIMAB [Suspect]
     Indication: RHEUMATOID ARTHRITIS
     Route: 042
  2. QUINAPRIL HCL [Concomitant]
  3. TRAMADOL HCL [Concomitant]

REACTIONS (1)
  - CORONARY ARTERY DISEASE [None]
